FAERS Safety Report 17168675 (Version 1)
Quarter: 2019Q4

REPORT INFORMATION
  Report Type: Spontaneous
  Country: US (occurrence: US)
  Receive Date: 20191218
  Receipt Date: 20191218
  Transmission Date: 20200122
  Serious: No
  Sender: FDA-Public Use
  Company Number: US-TEVA-2019-US-1152234

PATIENT

DRUGS (1)
  1. FLUOXETINE 20MG CAPSULE [Suspect]
     Active Substance: FLUOXETINE HYDROCHLORIDE
     Dosage: DOSE 120 MG
     Route: 065
     Dates: start: 2019

REACTIONS (1)
  - Somnolence [Unknown]
